FAERS Safety Report 20768828 (Version 1)
Quarter: 2022Q2

REPORT INFORMATION
  Report Type: Spontaneous
  Country: US (occurrence: None)
  Receive Date: 20220428
  Receipt Date: 20220428
  Transmission Date: 20220721
  Serious: Yes (Disabling)
  Sender: FDA-Public Use
  Company Number: None

PATIENT
  Age: 72 Year
  Sex: Female
  Weight: 99 kg

DRUGS (10)
  1. VENLAFAXINE [Suspect]
     Active Substance: VENLAFAXINE HYDROCHLORIDE
     Indication: Depression
     Dosage: FREQUENCY : DAILY;?
     Route: 048
     Dates: start: 20200401
  2. VENLAFAXINE [Suspect]
     Active Substance: VENLAFAXINE HYDROCHLORIDE
     Indication: Anxiety
  3. VENLAFAXINE [Suspect]
     Active Substance: VENLAFAXINE HYDROCHLORIDE
     Indication: Panic disorder
  4. LOSARTAN [Concomitant]
     Active Substance: LOSARTAN
  5. MONTELUKAST [Concomitant]
     Active Substance: MONTELUKAST SODIUM
  6. METOPROLOL [Concomitant]
     Active Substance: METOPROLOL
  7. Sodium Diltroex [Concomitant]
  8. KLONOPIN [Concomitant]
     Active Substance: CLONAZEPAM
  9. LEVETIRACETAM [Concomitant]
     Active Substance: LEVETIRACETAM
  10. HYDRALAZINE [Concomitant]
     Active Substance: HYDRALAZINE HYDROCHLORIDE

REACTIONS (6)
  - Nervousness [None]
  - Asthenia [None]
  - Tremor [None]
  - Flatulence [None]
  - Constipation [None]
  - Visual impairment [None]

NARRATIVE: CASE EVENT DATE: 20200401
